FAERS Safety Report 8356326-2 (Version None)
Quarter: 2012Q2

REPORT INFORMATION
  Report Type: 
  Country: None (occurrence: None)
  Receive Date: 20120514
  Receipt Date: 20120504
  Transmission Date: 20120825
  Serious: Yes (Other)
  Sender: FDA-Public Use
  Company Number: US-JNJFOC-20120408583

PATIENT
  Sex: Female
  Weight: 72.12 kg

DRUGS (12)
  1. WARFARIN SODIUM [Suspect]
     Indication: THROMBOSIS
     Route: 048
     Dates: start: 20120101, end: 20120416
  2. CALCIUM CARBONATE [Concomitant]
  3. ALLEGRA [Concomitant]
     Indication: MULTIPLE ALLERGIES
     Route: 048
  4. XARELTO [Suspect]
     Indication: THROMBOSIS
     Route: 048
     Dates: start: 20120418, end: 20120420
  5. CYTOTEC [Suspect]
     Indication: GASTRIC DISORDER
     Route: 048
     Dates: start: 20120301, end: 20120301
  6. DEXILANT [Suspect]
     Indication: HYPERCHLORHYDRIA
     Dates: start: 20120401, end: 20120401
  7. BENADRYL [Concomitant]
     Indication: MULTIPLE ALLERGIES
     Route: 048
  8. MAGNESIUM HYDROXIDE TAB [Concomitant]
  9. LOVENOX [Suspect]
     Indication: THROMBOSIS
     Route: 050
     Dates: start: 20120101, end: 20120101
  10. PROBIOTICS [Concomitant]
  11. ZYRTEC [Concomitant]
     Indication: MULTIPLE ALLERGIES
     Route: 048
  12. CLARITIN [Concomitant]
     Indication: MULTIPLE ALLERGIES
     Route: 048
     Dates: start: 20000101

REACTIONS (8)
  - OEDEMA PERIPHERAL [None]
  - HYPOAESTHESIA ORAL [None]
  - THROAT TIGHTNESS [None]
  - GLOSSODYNIA [None]
  - OROPHARYNGEAL PAIN [None]
  - DRUG INEFFECTIVE [None]
  - INAPPROPRIATE SCHEDULE OF DRUG ADMINISTRATION [None]
  - THROMBOSIS [None]
